FAERS Safety Report 13651851 (Version 1)
Quarter: 2017Q2

REPORT INFORMATION
  Report Type: Spontaneous
  Country: US (occurrence: US)
  Receive Date: 20170614
  Receipt Date: 20170614
  Transmission Date: 20170830
  Serious: No
  Sender: FDA-Public Use
  Company Number: US-BAYER-2017-114216

PATIENT
  Age: 68 Year
  Sex: Male
  Weight: 66 kg

DRUGS (5)
  1. STATIN [Concomitant]
     Active Substance: UNSPECIFIED INGREDIENT
     Indication: BLOOD CHOLESTEROL ABNORMAL
     Dosage: UNK
  2. CLARITIN LIQUI-GELS [Suspect]
     Active Substance: LORATADINE
     Indication: VIRAL UPPER RESPIRATORY TRACT INFECTION
  3. ANTACID PLUS ANTI-GAS [Concomitant]
     Indication: DYSPEPSIA
     Dosage: UNK
  4. CLARITIN LIQUI-GELS [Suspect]
     Active Substance: LORATADINE
     Indication: HYPERSENSITIVITY
     Dosage: UNK
     Route: 048
     Dates: end: 20170613
  5. VICKS INHALER [Concomitant]
     Active Substance: CAMPHOR\MENTHOL\METHYL SALICYLATE\PINE NEEDLE OIL (PINUS MUGO)
     Dosage: UNK

REACTIONS (3)
  - Drug ineffective [Unknown]
  - Lacrimation increased [Unknown]
  - Rhinorrhoea [Unknown]
